FAERS Safety Report 23741517 (Version 1)
Quarter: 2024Q2

REPORT INFORMATION
  Report Type: Spontaneous
  Country: IN (occurrence: IN)
  Receive Date: 20240415
  Receipt Date: 20240415
  Transmission Date: 20240716
  Serious: Yes (Hospitalization, Other)
  Sender: FDA-Public Use
  Company Number: IN-EPICPHARMA-IN-2024EPCLIT00358

PATIENT
  Age: 5 Month
  Sex: Male
  Weight: 6 kg

DRUGS (7)
  1. MORPHINE SULFATE [Suspect]
     Active Substance: MORPHINE SULFATE
     Indication: Epidural analgesia
     Dosage: 200 MICROGRAMS
     Route: 008
  2. ROPIVACAINE [Concomitant]
     Active Substance: ROPIVACAINE
     Route: 008
  3. TRICLOFOS [Concomitant]
     Active Substance: TRICLOFOS
     Indication: Product used for unknown indication
     Route: 048
  4. SEVOFLURANE [Concomitant]
     Active Substance: SEVOFLURANE
     Indication: Product used for unknown indication
  5. LACTATED RINGERS AND DEXTROSE SOLUTION [Concomitant]
     Active Substance: CALCIUM CHLORIDE\DEXTROSE\DEXTROSE MONOHYDRATE\POTASSIUM CHLORIDE\SODIUM CHLORIDE\SODIUM LACTATE
     Indication: Product used for unknown indication
     Route: 042
  6. ATRACURIUM [Concomitant]
     Active Substance: ATRACURIUM
     Indication: Muscle relaxant therapy
     Route: 065
  7. SODIUM CHLORIDE [Concomitant]
     Active Substance: SODIUM CHLORIDE
     Indication: Product used for unknown indication
     Route: 065

REACTIONS (1)
  - Clonic convulsion [Recovered/Resolved]
